FAERS Safety Report 6931710-X (Version None)
Quarter: 2010Q3

REPORT INFORMATION
  Report Type: 
  Country: None (occurrence: None)
  Receive Date: 20100819
  Receipt Date: 20100805
  Transmission Date: 20110219
  Serious: Yes (Hospitalization)
  Sender: FDA-Public Use
  Company Number: US-JNJCH-2010018831

PATIENT
  Sex: Female
  Weight: 113.4 kg

DRUGS (13)
  1. BENADRYL [Suspect]
     Indication: PRODUCT USED FOR UNKNOWN INDICATION
     Dosage: TEXT:UNKNOWN
     Route: 065
  2. REMICADE [Suspect]
     Indication: RHEUMATOID ARTHRITIS
     Dosage: TEXT:400 MG
     Route: 042
  3. REMICADE [Suspect]
     Dosage: TEXT:400 MG
     Route: 042
  4. REMICADE [Suspect]
     Dosage: TEXT:400 MG
     Route: 042
  5. LORAZEPAM [Suspect]
     Indication: PRODUCT USED FOR UNKNOWN INDICATION
     Dosage: TEXT:UNKNOWN
     Route: 065
  6. PREDNISONE [Concomitant]
     Indication: RHEUMATOID ARTHRITIS
     Dosage: TEXT:DOSE TAPERED 7.5MG TO 5 MG TO 2.5 MG
     Route: 065
  7. METHOTREXATE [Concomitant]
     Indication: RHEUMATOID ARTHRITIS
     Dosage: TEXT:20 MG, 1 IN 1 WEEK
     Route: 048
  8. HYDROCHLOROTHIAZIDE [Concomitant]
     Indication: HYPERTENSION
     Dosage: TEXT:UNKNOWN
     Route: 065
  9. POTASSIUM CHLORIDE [Concomitant]
     Indication: PRODUCT USED FOR UNKNOWN INDICATION
     Dosage: TEXT:UNKNOWN
     Route: 065
  10. NEXIUM [Concomitant]
     Indication: GASTROOESOPHAGEAL REFLUX DISEASE
     Dosage: TEXT:40 MG
     Route: 048
  11. FOLIC ACID [Concomitant]
     Indication: RHEUMATOID ARTHRITIS
     Dosage: TEXT:UNKNOWN
     Route: 065
  12. AMLODIPINE [Concomitant]
     Indication: HYPERTENSION
     Dosage: TEXT:5 MG, 1 IN 1 DAY
     Route: 048
  13. QUINAPRIL [Concomitant]
     Indication: HYPERTENSION
     Dosage: TEXT:20 MG, 1 IN 1 DAY
     Route: 065

REACTIONS (12)
  - BLOOD PRESSURE DECREASED [None]
  - BODY TEMPERATURE DECREASED [None]
  - DIARRHOEA [None]
  - DYSPNOEA [None]
  - FEELING ABNORMAL [None]
  - FLUSHING [None]
  - HOSPITALISATION [None]
  - INSOMNIA [None]
  - PAIN IN EXTREMITY [None]
  - RHEUMATOID ARTHRITIS [None]
  - VAGINAL HAEMORRHAGE [None]
  - WEIGHT DECREASED [None]
